FAERS Safety Report 14192264 (Version 2)
Quarter: 2018Q3

REPORT INFORMATION
  Report Type: Report from Study
  Country: DE (occurrence: DE)
  Receive Date: 20171115
  Receipt Date: 20180807
  Transmission Date: 20181010
  Serious: Yes (Hospitalization)
  Sender: FDA-Public Use
  Company Number: DE-UCBSA-2017045424

PATIENT
  Sex: Female

DRUGS (5)
  1. CERTOLIZUMAB PEGOL RA [Suspect]
     Active Substance: CERTOLIZUMAB PEGOL
     Indication: RHEUMATOID ARTHRITIS
     Dosage: 200 MG, EV 2 WEEKS(QOW)
     Dates: start: 201504
  2. MTX [Concomitant]
     Active Substance: METHOTREXATE SODIUM
     Dosage: 15 MG
  3. MTX [Concomitant]
     Active Substance: METHOTREXATE SODIUM
     Dosage: 15 MG / WEEKLY
  4. MTX [Concomitant]
     Active Substance: METHOTREXATE SODIUM
     Indication: PRODUCT USED FOR UNKNOWN INDICATION
     Dosage: 12.5MG
  5. MTX [Concomitant]
     Active Substance: METHOTREXATE SODIUM
     Dosage: 12.5MG

REACTIONS (2)
  - Urosepsis [Recovered/Resolved]
  - Femur fracture [Recovered/Resolved]

NARRATIVE: CASE EVENT DATE: 20170323
